FAERS Safety Report 8092872-7 (Version None)
Quarter: 2012Q1

REPORT INFORMATION
  Report Type: 
  Country: None (occurrence: None)
  Receive Date: 20120128
  Receipt Date: 20110726
  Transmission Date: 20120608
  Serious: No
  Sender: FDA-Public Use
  Company Number: US-ABBOTT-11P-163-0841798-00

PATIENT
  Age: 73 Year
  Sex: Male

DRUGS (6)
  1. HUMIRA [Suspect]
     Indication: CROHN'S DISEASE
     Dates: start: 20110601
  2. PREDNISONE TAB [Concomitant]
     Indication: CROHN'S DISEASE
  3. SIMVASTATIN [Concomitant]
     Indication: BLOOD CHOLESTEROL INCREASED
     Dosage: DAILY
  4. OMEPRAZOLE [Concomitant]
     Indication: BLOOD PRESSURE
  5. METOPROLOL TARTRATE [Concomitant]
     Indication: HYPERTENSION
  6. BALSALAZIDE DISODIUM [Concomitant]
     Indication: CROHN'S DISEASE

REACTIONS (1)
  - DIARRHOEA [None]
